FAERS Safety Report 8305338-3 (Version None)
Quarter: 2012Q2

REPORT INFORMATION
  Report Type: 
  Country: None (occurrence: None)
  Receive Date: 20120423
  Receipt Date: 20120410
  Transmission Date: 20120825
  Serious: Yes (Death, Hospitalization)
  Sender: FDA-Public Use
  Company Number: US-JNJFOC-20050902263

PATIENT
  Age: 40 Year
  Sex: Male

DRUGS (2)
  1. ACETAMINOPHEN [Suspect]
     Route: 048
  2. ACETAMINOPHEN [Suspect]
     Indication: VICTIM OF HOMICIDE
     Route: 048

REACTIONS (5)
  - OVERDOSE [None]
  - MULTI-ORGAN FAILURE [None]
  - HEPATIC NECROSIS [None]
  - HOMICIDE [None]
  - RENAL TUBULAR NECROSIS [None]
